FAERS Safety Report 16120533 (Version 4)
Quarter: 2019Q3

REPORT INFORMATION
  Report Type: Spontaneous
  Country: US (occurrence: US)
  Receive Date: 20190326
  Receipt Date: 20190924
  Transmission Date: 20191004
  Serious: Yes (Death, Hospitalization, Other)
  Sender: FDA-Public Use
  Company Number: US-INCYTE CORPORATION-2019IN002688

PATIENT

DRUGS (8)
  1. JAKAFI [Suspect]
     Active Substance: RUXOLITINIB
     Indication: GRAFT VERSUS HOST DISEASE IN LUNG
     Dosage: 5 MILLIGRAM, BID
     Route: 048
     Dates: start: 20181218, end: 20190114
  2. JAKAFI [Suspect]
     Active Substance: RUXOLITINIB
     Indication: ACUTE MYELOID LEUKAEMIA
     Dosage: 10 MG QAM , 5 MG QPM
     Route: 048
     Dates: start: 20190115, end: 20190123
  3. JAKAFI [Suspect]
     Active Substance: RUXOLITINIB
     Dosage: 5 MILLIGRAM, QD
     Route: 048
     Dates: start: 20190328
  4. JAKAFI [Suspect]
     Active Substance: RUXOLITINIB
     Dosage: 5 MILLIGRAM, BID
     Route: 048
     Dates: start: 20190124, end: 20190204
  5. JAKAFI [Suspect]
     Active Substance: RUXOLITINIB
     Indication: GRAFT VERSUS HOST DISEASE
     Dosage: 5 MILLIGRAM, QD
     Route: 048
     Dates: start: 20180508, end: 20181217
  6. JAKAFI [Suspect]
     Active Substance: RUXOLITINIB
     Indication: BONE MARROW TRANSPLANT
     Dosage: 5 MILLIGRAM, BID
     Route: 048
     Dates: start: 20180320, end: 20180507
  7. JAKAFI [Suspect]
     Active Substance: RUXOLITINIB
     Dosage: 5 MILLIGRAM, QD
     Route: 048
     Dates: start: 20190328
  8. JAKAFI [Suspect]
     Active Substance: RUXOLITINIB
     Dosage: 5 MILLIGRAM, QD
     Route: 048
     Dates: start: 20180410

REACTIONS (12)
  - Cytopenia [Recovered/Resolved]
  - Pneumonia respiratory syncytial viral [Recovered/Resolved]
  - Deep vein thrombosis [Recovered/Resolved]
  - Hyponatraemia [Recovered/Resolved]
  - Gastrointestinal disorder [Recovered/Resolved]
  - Death [Fatal]
  - Cor pulmonale [Recovered/Resolved]
  - Pulmonary embolism [Recovered/Resolved]
  - Acute kidney injury [Recovered/Resolved]
  - Off label use [Unknown]
  - Hypoxia [Recovered/Resolved]
  - Serositis [Recovered/Resolved]

NARRATIVE: CASE EVENT DATE: 20180320
